FAERS Safety Report 18212497 (Version 1)
Quarter: 2020Q3

REPORT INFORMATION
  Report Type: Spontaneous
  Country: US (occurrence: US)
  Receive Date: 20200828
  Receipt Date: 20200828
  Transmission Date: 20201103
  Serious: Yes (Life-Threatening, Hospitalization)
  Sender: FDA-Public Use
  Company Number: None

PATIENT
  Age: 78 Year
  Sex: Male
  Weight: 78.3 kg

DRUGS (13)
  1. CALCIUM [Concomitant]
     Active Substance: CALCIUM
  2. ATORVASTATIN [Concomitant]
     Active Substance: ATORVASTATIN
  3. CARVEDILOL. [Concomitant]
     Active Substance: CARVEDILOL
  4. VIT D [Concomitant]
     Active Substance: VITAMIN D NOS
  5. POTASSIUM GLUCONATE [Concomitant]
     Active Substance: POTASSIUM GLUCONATE
  6. HYDRALAZINE [Concomitant]
     Active Substance: HYDRALAZINE HYDROCHLORIDE
  7. TAMSULOSIN [Concomitant]
     Active Substance: TAMSULOSIN
  8. PATOPRZOL (EPINEPHRINE) [Concomitant]
  9. VIT/MIN [Concomitant]
  10. CHERRY SORE THROAT LOZENGE [Suspect]
     Active Substance: BENZOCAINE\MENTHOL
     Indication: OROPHARYNGEAL PAIN
     Dosage: ?          QUANTITY:1 TABLET(S);?
     Route: 048
     Dates: start: 20200104, end: 20200104
  11. AMLODIPINE [Concomitant]
     Active Substance: AMLODIPINE BESYLATE
  12. CLOPISOGREL [Concomitant]
  13. DUCOSATE [Concomitant]

REACTIONS (4)
  - Lip swelling [None]
  - Swollen tongue [None]
  - Swelling face [None]
  - Oral discomfort [None]

NARRATIVE: CASE EVENT DATE: 20200105
